FAERS Safety Report 4897404-X (Version None)
Quarter: 2006Q1

REPORT INFORMATION
  Report Type: 
  Country: None (occurrence: None)
  Receive Date: 20060130
  Receipt Date: 20060130
  Transmission Date: 20060701
  Serious: Yes (Hospitalization)
  Sender: FDA-Public Use
  Company Number: None

PATIENT
  Age: 62 Year
  Sex: Male

DRUGS (21)
  1. GATIFLOXACIN [Suspect]
     Indication: ANTIBIOTIC PROPHYLAXIS
     Dosage: 400MG PO QD
     Route: 048
     Dates: start: 20051105, end: 20051109
  2. CIPROFLOXACIN [Suspect]
     Indication: DEVICE RELATED INFECTION
     Dosage: 500MG PO BID
     Route: 048
     Dates: start: 20051109, end: 20051115
  3. GATIFLOXACIN [Concomitant]
  4. PERCOCET [Concomitant]
  5. PSEUDOEPHEDRINE HCL [Concomitant]
  6. TRIPROLIDINE [Concomitant]
  7. EZETIMIBE [Concomitant]
  8. FLUOXETINE [Concomitant]
  9. SIMVASTATIN [Concomitant]
  10. GEMFIBROZIL [Concomitant]
  11. DIAZEPAM [Concomitant]
  12. MICONAZOLE [Concomitant]
  13. CARBAMAZEPINE [Concomitant]
  14. OMEPRAZOLE [Concomitant]
  15. VITAMIN A+D OINTMENT [Concomitant]
  16. NIACIN [Concomitant]
  17. FOSINOPRIL SODIUM [Concomitant]
  18. CIMETIDINE [Concomitant]
  19. GLYBURIDE [Concomitant]
  20. STEROID INHALER [Concomitant]
  21. COMBIVENT [Concomitant]

REACTIONS (3)
  - BLOOD GLUCOSE DECREASED [None]
  - GLYCOSYLATED HAEMOGLOBIN INCREASED [None]
  - HYPERGLYCAEMIA [None]
